FAERS Safety Report 21988200 (Version 1)
Quarter: 2023Q1

REPORT INFORMATION
  Report Type: Spontaneous
  Country: US (occurrence: US)
  Receive Date: 20230214
  Receipt Date: 20230214
  Transmission Date: 20230417
  Serious: Yes (Death, Hospitalization, Other)
  Sender: FDA-Public Use
  Company Number: US-IPCA LABORATORIES LIMITED-IPC-2023-US-000217

PATIENT
  Age: 71 Year
  Sex: Female

DRUGS (1)
  1. ALLOPURINOL [Suspect]
     Active Substance: ALLOPURINOL
     Indication: Product used for unknown indication
     Dosage: UNK
     Route: 065

REACTIONS (8)
  - Drug reaction with eosinophilia and systemic symptoms [Fatal]
  - Anaemia [Fatal]
  - Thrombocytopenia [Fatal]
  - Hypertransaminasaemia [Fatal]
  - Acute respiratory failure [Fatal]
  - Acute kidney injury [Fatal]
  - Disseminated intravascular coagulation [Fatal]
  - Pericardial effusion [Fatal]
